FAERS Safety Report 7805185-2 (Version None)
Quarter: 2011Q4

REPORT INFORMATION
  Report Type: 
  Country: None (occurrence: None)
  Receive Date: 20111010
  Receipt Date: 20110927
  Transmission Date: 20120403
  Serious: Yes (Death, Other)
  Sender: FDA-Public Use
  Company Number: US-BAYER-201012041NA

PATIENT
  Age: 2 Year
  Sex: Female
  Weight: 12.245 kg

DRUGS (21)
  1. ENALAPRIL MALEATE [Concomitant]
     Dosage: 10-25 MG TWICE DAILY
  2. EPINEPHRINE [Concomitant]
     Dosage: 7.5 MCG
     Route: 042
     Dates: start: 20050722, end: 20050722
  3. SPIRONOLACTONE [Concomitant]
     Dosage: 2.6 ML, BID
  4. DIGOXIN [Concomitant]
     Dosage: 125 MCG TWICE DAILY
  5. HEPARIN [Concomitant]
     Dosage: 3100 U, UNK
     Route: 042
     Dates: start: 20050722, end: 20050722
  6. TRASYLOL [Suspect]
     Indication: SYSTEMIC-PULMONARY ARTERY SHUNT
     Dosage: 200 ML TOTAL GIVEN DURING PROCEDURE [150 ML GIVEN AT 1245, 50 ML GIVEN AT 1430]
     Route: 042
     Dates: start: 20050722, end: 20050722
  7. PROTAMINE [Concomitant]
     Dosage: 40 MG, UNK
     Route: 042
     Dates: start: 20050722, end: 20050722
  8. VASOPRESSIN [Concomitant]
     Dosage: UNK
     Route: 042
     Dates: start: 20050722, end: 20050722
  9. MIDAZOLAM HCL [Concomitant]
     Dosage: 4 MG, UNK
     Route: 042
     Dates: start: 20050722, end: 20050722
  10. KLONOPIN [Concomitant]
     Dosage: 0.25 MG, BID
  11. KEFZOL [Concomitant]
     Dosage: 938 MG, UNK
     Route: 042
     Dates: start: 20050722, end: 20050722
  12. RED BLOOD CELLS [Concomitant]
     Indication: VASCULAR GRAFT
     Dosage: 60 ML, UNK
     Dates: start: 20050722, end: 20050722
  13. BROMPHENIRAMINE [Concomitant]
     Dosage: 12 MG, UNK
     Dates: start: 20050110, end: 20050916
  14. KEPPRA [Concomitant]
     Dosage: 2 ML, BID
  15. PROPRANOLOL [Concomitant]
     Dosage: 1 ML, TID
  16. LASIX [Concomitant]
     Dosage: 20 MG, BID
  17. PHENYLEPHRINE HCL [Concomitant]
     Dosage: 60 MCG
     Route: 042
     Dates: start: 20050722, end: 20050722
  18. FENTANYL [Concomitant]
     Dosage: 1000 MCG
     Route: 042
     Dates: start: 20050722, end: 20050722
  19. PANCURONIUM [Concomitant]
     Dosage: 5 MG, UNK
     Route: 042
     Dates: start: 20050722, end: 20050722
  20. CALCIUM CHLORIDE [Concomitant]
     Dosage: 315 MG, UNK
     Route: 042
     Dates: start: 20050722, end: 20050722
  21. ACETYLSALICYLIC ACID SRT [Concomitant]
     Dosage: 81 MG, QD

REACTIONS (13)
  - EMOTIONAL DISTRESS [None]
  - ANXIETY [None]
  - RENAL IMPAIRMENT [None]
  - RENAL INJURY [None]
  - CARDIAC FAILURE CONGESTIVE [None]
  - RENAL FAILURE [None]
  - FEAR [None]
  - DEATH [None]
  - INJURY [None]
  - MULTI-ORGAN FAILURE [None]
  - STRESS [None]
  - UNEVALUABLE EVENT [None]
  - PAIN [None]
